FAERS Safety Report 10248346 (Version 1)
Quarter: 2014Q2

REPORT INFORMATION
  Report Type: Spontaneous
  Country: US (occurrence: US)
  Receive Date: 20140620
  Receipt Date: 20140620
  Transmission Date: 20141212
  Serious: Yes (Hospitalization)
  Sender: FDA-Public Use
  Company Number: US-DRREDDYS-USA/USA/13/0035001

PATIENT
  Age: 58 Year
  Sex: Male

DRUGS (9)
  1. TACROLIMUS [Suspect]
     Indication: IMMUNOSUPPRESSANT DRUG THERAPY
     Route: 048
  2. TACROLIMUS [Interacting]
     Route: 048
  3. TACROLIMUS [Suspect]
     Indication: IMMUNOSUPPRESSANT DRUG THERAPY
     Route: 060
  4. RITONAVIR [Interacting]
     Indication: HIV INFECTION
     Route: 065
  5. EMTRICITABINE [Suspect]
     Indication: HIV INFECTION
     Route: 065
  6. TENOFOVIR [Suspect]
     Indication: HIV INFECTION
     Route: 065
  7. METHYLPREDNISOLONE [Suspect]
     Indication: IMMUNOSUPPRESSANT DRUG THERAPY
     Route: 042
  8. PREDNISONE [Suspect]
     Indication: IMMUNOSUPPRESSANT DRUG THERAPY
     Route: 048
  9. MYCOPHENOLATE MOFETIL [Suspect]
     Indication: IMMUNOSUPPRESSANT DRUG THERAPY
     Route: 065

REACTIONS (7)
  - Drug interaction [Unknown]
  - Drug level above therapeutic [Unknown]
  - Confusional state [Recovered/Resolved]
  - Headache [Recovered/Resolved]
  - Tremor [Recovered/Resolved]
  - Blood creatinine increased [Recovering/Resolving]
  - Extra dose administered [Unknown]
